FAERS Safety Report 5230184-7 (Version None)
Quarter: 2007Q1

REPORT INFORMATION
  Report Type: 
  Country: None (occurrence: None)
  Receive Date: 20070206
  Receipt Date: 20060925
  Transmission Date: 20070707
  Serious: No
  Sender: FDA-Public Use
  Company Number: US-GLAXOSMITHKLINE-A0621297A

PATIENT
  Age: 60 Year
  Sex: Female

DRUGS (7)
  1. PAXIL CR [Suspect]
     Dosage: 37.5MG PER DAY
     Route: 048
     Dates: start: 20060622
  2. LAMICTAL [Concomitant]
  3. NEXIUM [Concomitant]
  4. VITAMINS [Concomitant]
  5. ASPIRIN [Concomitant]
  6. OMEGA 3 FISH OIL [Concomitant]
  7. CALCIUM [Concomitant]

REACTIONS (7)
  - ANOREXIA [None]
  - ANXIETY [None]
  - DIARRHOEA [None]
  - DIZZINESS [None]
  - PHARMACEUTICAL PRODUCT COMPLAINT [None]
  - TREMOR [None]
  - VOMITING [None]
